FAERS Safety Report 5995561-5 (Version None)
Quarter: 2008Q4

REPORT INFORMATION
  Report Type: 
  Country: None (occurrence: None)
  Receive Date: 20081212
  Receipt Date: 20081001
  Transmission Date: 20090506
  Serious: Yes (Hospitalization)
  Sender: FDA-Public Use
  Company Number: US-ABBOTT-08P-163-0479243-00

PATIENT
  Sex: Female
  Weight: 95.34 kg

DRUGS (13)
  1. HUMIRA [Suspect]
     Indication: PSORIATIC ARTHROPATHY
     Route: 058
     Dates: start: 20080819, end: 20080819
  2. HUMIRA [Suspect]
     Indication: PSORIASIS
  3. SERETIDE [Concomitant]
     Indication: ASTHMA
     Route: 055
  4. ZYRTEC [Concomitant]
     Indication: HYPERSENSITIVITY
     Route: 048
  5. ZAFIRLUKAST [Concomitant]
     Indication: ASTHMA
  6. RANITIDINE [Concomitant]
     Indication: GASTRITIS PROPHYLAXIS
     Route: 048
  7. DOXYCYCLINE [Concomitant]
     Indication: ROSACEA
     Route: 048
  8. SIMVASTATIN [Concomitant]
     Indication: BLOOD CHOLESTEROL INCREASED
     Route: 048
  9. UBIDECARENONE [Concomitant]
     Indication: BLOOD CHOLESTEROL INCREASED
     Route: 048
  10. ALBUTEROL SULFATE [Concomitant]
     Indication: ASTHMA
     Route: 055
  11. ALBUTEROL SULFATE [Concomitant]
  12. ALBUTEROL [Concomitant]
     Indication: ASTHMA
     Dosage: NEBULIZER
  13. ULCERVATE CREAM [Concomitant]
     Indication: PSORIASIS
     Route: 061

REACTIONS (7)
  - ABDOMINAL PAIN UPPER [None]
  - BALANCE DISORDER [None]
  - DEHYDRATION [None]
  - HEAD DISCOMFORT [None]
  - NAUSEA [None]
  - VERTIGO [None]
  - VOMITING [None]
